FAERS Safety Report 7505668-9 (Version None)
Quarter: 2011Q2

REPORT INFORMATION
  Report Type: 
  Country: None (occurrence: None)
  Receive Date: 20110526
  Receipt Date: 20110517
  Transmission Date: 20111010
  Serious: Yes (Hospitalization)
  Sender: FDA-Public Use
  Company Number: US-ASTRAZENECA-2011SE29833

PATIENT
  Age: 61 Year
  Sex: Female
  Weight: 131.5 kg

DRUGS (7)
  1. MULTI-VITAMIN [Concomitant]
  2. CALCIUM CARBONATE [Concomitant]
  3. NEXIUM [Suspect]
     Route: 048
  4. NEXIUM [Suspect]
     Indication: GASTROOESOPHAGEAL REFLUX DISEASE
     Route: 048
     Dates: start: 20010101, end: 20110501
  5. ALLEGRA [Concomitant]
  6. EFFEXOR [Concomitant]
  7. ATENOLOL [Concomitant]

REACTIONS (2)
  - KNEE ARTHROPLASTY [None]
  - FEMUR FRACTURE [None]
